FAERS Safety Report 5746980-3 (Version None)
Quarter: 2008Q2

REPORT INFORMATION
  Report Type: 
  Country: None (occurrence: None)
  Receive Date: 20080522
  Receipt Date: 20080512
  Transmission Date: 20081010
  Serious: Yes (Other)
  Sender: FDA-Public Use
  Company Number: US-PFIZER INC-2008041539

PATIENT
  Age: 40 Year
  Sex: Female

DRUGS (2)
  1. SOLU-MEDROL [Suspect]
     Indication: MULTIPLE SCLEROSIS
     Route: 042
  2. DRUG, UNSPECIFIED [Concomitant]

REACTIONS (4)
  - ERYTHEMA [None]
  - HYPOTENSION [None]
  - RED MAN SYNDROME [None]
  - TREMOR [None]
